FAERS Safety Report 13815437 (Version 1)
Quarter: 2017Q3

REPORT INFORMATION
  Report Type: Spontaneous
  Country: US (occurrence: US)
  Receive Date: 20170731
  Receipt Date: 20170731
  Transmission Date: 20171127
  Serious: Yes (Disabling)
  Sender: FDA-Public Use
  Company Number: None

PATIENT
  Age: 68 Year
  Sex: Female
  Weight: 72 kg

DRUGS (11)
  1. ZYRTEC [Concomitant]
     Active Substance: CETIRIZINE HYDROCHLORIDE
  2. ZIRGAN [Concomitant]
     Active Substance: GANCICLOVIR
  3. ZANTEC [Concomitant]
  4. KRILL OIL [Concomitant]
     Active Substance: DIETARY SUPPLEMENT
  5. LISINOPRIL. [Concomitant]
     Active Substance: LISINOPRIL
  6. ACYCLOVIR. [Concomitant]
     Active Substance: ACYCLOVIR
  7. OTEZLA [Suspect]
     Active Substance: APREMILAST
     Indication: PSORIASIS
     Route: 048
     Dates: end: 20170526
  8. DUREZOL [Concomitant]
     Active Substance: DIFLUPREDNATE
  9. PREDNISONE. [Concomitant]
     Active Substance: PREDNISONE
  10. NIACIN. [Concomitant]
     Active Substance: NIACIN
  11. CALCIUM [Concomitant]
     Active Substance: CALCIUM

REACTIONS (2)
  - Blood cholesterol increased [None]
  - Corneal graft rejection [None]

NARRATIVE: CASE EVENT DATE: 20170526
